FAERS Safety Report 17888592 (Version 1)
Quarter: 2020Q2

REPORT INFORMATION
  Report Type: Spontaneous
  Country: US (occurrence: US)
  Receive Date: 20200612
  Receipt Date: 20200612
  Transmission Date: 20200714
  Serious: Yes (Death)
  Sender: FDA-Public Use
  Company Number: US-ROCHE-2616462

PATIENT
  Age: 69 Year
  Sex: Male
  Weight: 115 kg

DRUGS (2)
  1. ACTEMRA [Suspect]
     Active Substance: TOCILIZUMAB
     Indication: COVID-19 PNEUMONIA
     Dosage: ONCE
     Route: 042
     Dates: start: 20200325, end: 20200325
  2. REMDESIVIR. [Concomitant]
     Active Substance: REMDESIVIR
     Route: 065

REACTIONS (10)
  - Intentional product use issue [Unknown]
  - Acute kidney injury [Fatal]
  - Pulmonary mycosis [Fatal]
  - Anaemia [Fatal]
  - Off label use [Unknown]
  - Hypernatraemia [Fatal]
  - Pneumonia bacterial [Fatal]
  - Cardiac arrest [Fatal]
  - Multiple organ dysfunction syndrome [Fatal]
  - Hyperkalaemia [Fatal]

NARRATIVE: CASE EVENT DATE: 20200402
